FAERS Safety Report 5621603-2 (Version None)
Quarter: 2008Q1

REPORT INFORMATION
  Report Type: 
  Country: None (occurrence: None)
  Receive Date: 20080130
  Receipt Date: 20080109
  Transmission Date: 20080703
  Serious: No
  Sender: FDA-Public Use
  Company Number: WAES 0801USA01855

PATIENT
  Sex: Female

DRUGS (1)
  1. TOP ZIMECTERIN 1.87 % [Suspect]
     Indication: DRUG ADMINISTRATION ERROR
     Dosage: TOP
     Route: 061
     Dates: start: 20080109, end: 20080109

REACTIONS (3)
  - ACCIDENTAL EXPOSURE [None]
  - HEADACHE [None]
  - TREMOR [None]
